FAERS Safety Report 26210306 (Version 1)
Quarter: 2025Q4

REPORT INFORMATION
  Report Type: Spontaneous
  Country: US (occurrence: US)
  Receive Date: 20251229
  Receipt Date: 20251229
  Transmission Date: 20260118
  Serious: Yes (Death, Other)
  Sender: NOVO NORDISK
  Company Number: US-NOVOPROD-1590441

PATIENT
  Age: 83 Year
  Sex: Male

DRUGS (1)
  1. NOVOLOG [Suspect]
     Active Substance: INSULIN ASPART
     Indication: Diabetes mellitus
     Dosage: UNK

REACTIONS (4)
  - Fall [Fatal]
  - Head injury [Fatal]
  - Loss of consciousness [Fatal]
  - Dizziness [Fatal]

NARRATIVE: CASE EVENT DATE: 20250301
